FAERS Safety Report 7351973-9 (Version None)
Quarter: 2011Q1

REPORT INFORMATION
  Report Type: 
  Country: None (occurrence: None)
  Receive Date: 20110310
  Receipt Date: 20110310
  Transmission Date: 20110831
  Serious: Yes (Other)
  Sender: FDA-Public Use
  Company Number: None

PATIENT
  Sex: Female
  Weight: 64.4108 kg

DRUGS (1)
  1. ACETAMINOPHEN [Suspect]
     Indication: MENSTRUAL CYCLE MANAGEMENT
     Dosage: NON ASPIRIN 2 TABLETS 325 MG
     Dates: start: 20110218

REACTIONS (4)
  - DIZZINESS [None]
  - HEADACHE [None]
  - VOMITING [None]
  - NAUSEA [None]
